FAERS Safety Report 7361446-5 (Version None)
Quarter: 2011Q1

REPORT INFORMATION
  Report Type: 
  Country: None (occurrence: None)
  Receive Date: 20110310
  Receipt Date: 20110228
  Transmission Date: 20110831
  Serious: Yes (Other)
  Sender: FDA-Public Use
  Company Number: 005908

PATIENT
  Sex: Male
  Weight: 230 kg

DRUGS (5)
  1. MERCAPTOPURINE [Concomitant]
  2. CIPRO [Concomitant]
  3. CIMZIA [Suspect]
     Indication: CROHN'S DISEASE
     Dosage: (400 MG 1X/2 WEEKS , X 3 DOSES SUBCUTANEOUS)
     Route: 058
     Dates: start: 20091001
  4. FLAGYL [Concomitant]
  5. SYNTHROID [Concomitant]

REACTIONS (3)
  - CONDITION AGGRAVATED [None]
  - TESTIS CANCER [None]
  - CROHN'S DISEASE [None]
